FAERS Safety Report 24669673 (Version 2)
Quarter: 2024Q4

REPORT INFORMATION
  Report Type: Spontaneous
  Country: AR (occurrence: AR)
  Receive Date: 20241127
  Receipt Date: 20241203
  Transmission Date: 20250115
  Serious: Yes (Hospitalization, Other)
  Sender: SANOFI AVENTIS
  Company Number: AR-SA-2024SA345983

PATIENT
  Age: 90 Year
  Sex: Female

DRUGS (1)
  1. LANTUS [Suspect]
     Active Substance: INSULIN GLARGINE
     Dosage: UNK
     Dates: start: 2009

REACTIONS (2)
  - Cerebrovascular accident [Unknown]
  - Mobility decreased [Unknown]

NARRATIVE: CASE EVENT DATE: 20090101
